FAERS Safety Report 19356615 (Version 1)
Quarter: 2021Q2

REPORT INFORMATION
  Report Type: Spontaneous
  Country: US (occurrence: US)
  Receive Date: 20210602
  Receipt Date: 20210602
  Transmission Date: 20210717
  Serious: Yes (Hospitalization)
  Sender: FDA-Public Use
  Company Number: US-APOTEX-2021AP012905

PATIENT
  Age: 3 Year
  Sex: Male
  Weight: 18.1 kg

DRUGS (2)
  1. ALBUTEROL. [Suspect]
     Active Substance: ALBUTEROL
     Indication: ASTHMA
     Dosage: 2 DOSAGE FORM
     Route: 065
  2. LEVALBUTEROL [LEVOSALBUTAMOL] [Suspect]
     Active Substance: LEVALBUTEROL
     Indication: DYSPNOEA
     Dosage: 2 DOSAGE FORM (1.26 MG)
     Route: 065

REACTIONS (1)
  - Supraventricular tachycardia [Recovered/Resolved]
